FAERS Safety Report 5032399-X (Version None)
Quarter: 2006Q2

REPORT INFORMATION
  Report Type: 
  Country: None (occurrence: None)
  Receive Date: 20060622
  Receipt Date: 20060612
  Transmission Date: 20061013
  Serious: Yes (Other)
  Sender: FDA-Public Use
  Company Number: GR-JNJFOC-20060602698

PATIENT
  Age: 48 Year
  Sex: Female

DRUGS (3)
  1. REMICADE [Suspect]
     Dosage: AT WEEK 8
     Route: 042
  2. REMICADE [Suspect]
     Dosage: AT WEEK 4
     Route: 042
  3. REMICADE [Suspect]
     Indication: ANKYLOSING SPONDYLITIS
     Dosage: AT WEEK 0
     Route: 042

REACTIONS (1)
  - TUBERCULOSIS [None]
